FAERS Safety Report 18080396 (Version 1)
Quarter: 2020Q3

REPORT INFORMATION
  Report Type: Spontaneous
  Country: US (occurrence: US)
  Receive Date: 20200728
  Receipt Date: 20200728
  Transmission Date: 20201103
  Serious: Yes (Other)
  Sender: FDA-Public Use
  Company Number: None

PATIENT
  Age: 8 Year
  Sex: Male
  Weight: 17.64 kg

DRUGS (2)
  1. GENOTROPIN [Suspect]
     Active Substance: SOMATROPIN
     Indication: HYPOPITUITARISM
     Route: 058
  2. GENOTROPIN [Concomitant]
     Active Substance: SOMATROPIN
     Dates: start: 20200507

REACTIONS (2)
  - Therapy interrupted [None]
  - Device breakage [None]

NARRATIVE: CASE EVENT DATE: 20200715
